FAERS Safety Report 11003926 (Version 1)
Quarter: 2015Q2

REPORT INFORMATION
  Report Type: Spontaneous
  Country: None (occurrence: None)
  Receive Date: 20150408
  Receipt Date: 20150408
  Transmission Date: 20150821
  Serious: No
  Sender: FDA-Public Use
  Company Number: None

PATIENT
  Age: 58 Year
  Sex: Male
  Weight: 94 kg

DRUGS (4)
  1. NEOCLARITYN [Suspect]
     Active Substance: DESLORATADINE
     Indication: PRURITUS
     Route: 048
  2. PRITOR [Concomitant]
     Active Substance: TELMISARTAN
  3. NEOCLARITYN [Suspect]
     Active Substance: DESLORATADINE
     Indication: SEASONAL ALLERGY
     Route: 048
  4. NEOCLARITYN [Suspect]
     Active Substance: DESLORATADINE
     Indication: SNEEZING
     Route: 048

REACTIONS (6)
  - Disease recurrence [None]
  - Hypersensitivity [None]
  - Dry throat [None]
  - Dysphonia [None]
  - Therapy cessation [None]
  - Vocal cord disorder [None]
